FAERS Safety Report 8291448-6 (Version None)
Quarter: 2012Q2

REPORT INFORMATION
  Report Type: 
  Country: None (occurrence: None)
  Receive Date: 20120417
  Receipt Date: 20120409
  Transmission Date: 20120825
  Serious: Yes (Other)
  Sender: FDA-Public Use
  Company Number: US-CELGENEUS-163-21880-12033314

PATIENT
  Sex: Female

DRUGS (7)
  1. MULTI-VITAMINS [Concomitant]
     Route: 065
  2. MELATONIN [Concomitant]
     Route: 065
  3. CO Q-10 [Concomitant]
     Route: 065
  4. CALCIUM CARBONATE [Concomitant]
     Route: 048
  5. VITAMIN D [Concomitant]
     Route: 065
  6. REVLIMID [Suspect]
     Indication: MULTIPLE MYELOMA
     Dosage: 25 MILLIGRAM
     Route: 048
     Dates: start: 20120215, end: 20120229
  7. LOVAZA [Concomitant]
     Route: 065

REACTIONS (2)
  - BRONCHOSPASM [None]
  - OROPHARYNGEAL PAIN [None]
